FAERS Safety Report 10190632 (Version 1)
Quarter: 2014Q2

REPORT INFORMATION
  Report Type: Spontaneous
  Country: US (occurrence: US)
  Receive Date: 20140523
  Receipt Date: 20140523
  Transmission Date: 20141212
  Serious: No
  Sender: FDA-Public Use
  Company Number: US-009507513-1405USA009386

PATIENT
  Age: 60 Year
  Sex: Male

DRUGS (9)
  1. STROMECTOL [Suspect]
     Indication: STRONGYLOIDIASIS
     Route: 048
  2. ALBENDAZOLE [Concomitant]
  3. METHYLPREDNISOLONE SODIUM SUCCINATE [Concomitant]
     Dosage: 1 G DAILY FOR 3 DAYS
  4. TACROLIMUS [Concomitant]
  5. MYCOPHENOLATE MOFETIL [Concomitant]
  6. PREDNISONE [Concomitant]
     Dosage: 270 MG DAILY FOR 3 DAYS
     Route: 048
  7. MEROPENEM [Concomitant]
     Indication: BACTERAEMIA
  8. DAPTOMYCIN [Concomitant]
     Indication: BACTERAEMIA
  9. LINEZOLID [Concomitant]
     Indication: BACTERAEMIA

REACTIONS (1)
  - Drug ineffective [Unknown]
